FAERS Safety Report 9789063 (Version 1)
Quarter: 2013Q4

REPORT INFORMATION
  Report Type: Spontaneous
  Country: US (occurrence: US)
  Receive Date: 20131230
  Receipt Date: 20131230
  Transmission Date: 20140711
  Serious: No
  Sender: FDA-Public Use
  Company Number: UM-ASTRAZENECA-2013SE89651

PATIENT
  Age: 65 Year
  Sex: Male

DRUGS (2)
  1. BRILINTA [Suspect]
     Indication: STENT PLACEMENT
     Route: 048
     Dates: start: 20131127
  2. CARVEDILOL [Concomitant]
     Indication: HYPERTENSION
     Route: 048
     Dates: start: 20131127

REACTIONS (2)
  - Flatulence [Not Recovered/Not Resolved]
  - Abdominal distension [Not Recovered/Not Resolved]
